FAERS Safety Report 16007487 (Version 1)
Quarter: 2019Q1

REPORT INFORMATION
  Report Type: Spontaneous
  Country: US (occurrence: US)
  Receive Date: 20190226
  Receipt Date: 20190226
  Transmission Date: 20190418
  Serious: No
  Sender: FDA-Public Use
  Company Number: US-IGSA-SR10007558

PATIENT
  Age: 41 Year
  Sex: Female
  Weight: 45 kg

DRUGS (41)
  1. LEVETIRACETAM. [Concomitant]
     Active Substance: LEVETIRACETAM
  2. PYRIDOXINE HCL [Concomitant]
     Active Substance: PYRIDOXINE HYDROCHLORIDE
  3. ANTIPYRINE + BENZOCAINE [Concomitant]
  4. ESOMEPRAZOLE SODIUM. [Concomitant]
     Active Substance: ESOMEPRAZOLE SODIUM
  5. NITROGLYCERIN. [Concomitant]
     Active Substance: NITROGLYCERIN
  6. VITAMIN E                          /00110501/ [Concomitant]
     Active Substance: TOCOPHEROL
  7. CRANBERRY PLUS VITAMIN C [Concomitant]
  8. METFORMIN HYDROCHLORIDE. [Concomitant]
     Active Substance: METFORMIN HYDROCHLORIDE
  9. DICYCLOMINE HCL [Concomitant]
     Active Substance: DICYCLOMINE HYDROCHLORIDE
  10. PROLASTIN-C LIQUID [Suspect]
     Active Substance: .ALPHA.1-PROTEINASE INHIBITOR HUMAN
     Indication: ALPHA-1 ANTI-TRYPSIN DEFICIENCY
     Dosage: 2694 MG, Q.WK.
     Route: 042
     Dates: start: 201810, end: 20181206
  11. FOLIC ACID. [Concomitant]
     Active Substance: FOLIC ACID
  12. BENZONATATE. [Concomitant]
     Active Substance: BENZONATATE
  13. BUSPIRONE HCL [Concomitant]
     Active Substance: BUSPIRONE HYDROCHLORIDE
  14. ESTRADIOL. [Concomitant]
     Active Substance: ESTRADIOL
  15. PROBIOTIC                          /06395501/ [Concomitant]
     Active Substance: BIFIDOBACTERIUM ANIMALIS LACTIS
  16. LASIX [Concomitant]
     Active Substance: FUROSEMIDE
  17. MULTIVITAMIN                       /00097801/ [Concomitant]
     Active Substance: VITAMINS
  18. PROLASTIN-C LIQUID [Suspect]
     Active Substance: .ALPHA.1-PROTEINASE INHIBITOR HUMAN
     Dosage: UNK
     Dates: start: 20180808, end: 20181206
  19. BENADRYL ALLERGY [Concomitant]
     Active Substance: DIPHENHYDRAMINE HYDROCHLORIDE
  20. CETIRIZINE HCL [Concomitant]
     Active Substance: CETIRIZINE HYDROCHLORIDE
  21. ANORO ELLIPTA [Concomitant]
     Active Substance: UMECLIDINIUM BROMIDE\VILANTEROL TRIFENATATE
  22. VENTOLIN HFA [Concomitant]
     Active Substance: ALBUTEROL SULFATE
  23. MONTELUKAST SODIUM. [Concomitant]
     Active Substance: MONTELUKAST SODIUM
  24. ENSURE COMPACT [Concomitant]
  25. GARLIC OIL [Concomitant]
     Active Substance: GARLIC OIL
  26. OFLOXACIN. [Concomitant]
     Active Substance: OFLOXACIN
  27. TAMIFLU [Concomitant]
     Active Substance: OSELTAMIVIR PHOSPHATE
  28. FIBER ADVANCE [Concomitant]
  29. GAS-X MAX STRENGTH [Concomitant]
  30. VITAMIN D3 [Concomitant]
     Active Substance: CHOLECALCIFEROL
  31. IPRATROPIUM [Concomitant]
     Active Substance: IPRATROPIUM
  32. FLOVENT HFA [Concomitant]
     Active Substance: FLUTICASONE PROPIONATE
  33. MIRALAX [Concomitant]
     Active Substance: POLYETHYLENE GLYCOL 3350
  34. POTASSIUM CHLORIDE. [Concomitant]
     Active Substance: POTASSIUM CHLORIDE
  35. TROKENDI XR [Concomitant]
     Active Substance: TOPIRAMATE
  36. ASPIRIN                            /00002701/ [Concomitant]
     Active Substance: ASPIRIN
  37. LAMOTRIGINE. [Concomitant]
     Active Substance: LAMOTRIGINE
  38. SALINE                             /00075401/ [Concomitant]
     Active Substance: SODIUM CHLORIDE
  39. CYANOCOBALAMIN. [Concomitant]
     Active Substance: CYANOCOBALAMIN
  40. CROMOLYN SODIUM. [Concomitant]
     Active Substance: CROMOLYN SODIUM
  41. FERROUS SULFATE. [Concomitant]
     Active Substance: FERROUS SULFATE

REACTIONS (5)
  - Fatigue [Not Recovered/Not Resolved]
  - Asthenia [Not Recovered/Not Resolved]
  - Pain in extremity [Not Recovered/Not Resolved]
  - Chest discomfort [Not Recovered/Not Resolved]
  - Dizziness [Not Recovered/Not Resolved]

NARRATIVE: CASE EVENT DATE: 201810
